FAERS Safety Report 24340509 (Version 1)
Quarter: 2024Q3

REPORT INFORMATION
  Report Type: Spontaneous
  Country: US (occurrence: US)
  Receive Date: 20240919
  Receipt Date: 20240919
  Transmission Date: 20241017
  Serious: No
  Sender: Karo Pharma
  Company Number: US-Karo Pharma-2161829

PATIENT
  Sex: Female

DRUGS (13)
  1. TERBINAFINE [Suspect]
     Active Substance: TERBINAFINE
     Indication: Mycobacterium avium complex infection
  2. AZITHROMYCIN [Suspect]
     Active Substance: AZITHROMYCIN
  3. ETHAMBUTOL [Suspect]
     Active Substance: ETHAMBUTOL HYDROCHLORIDE
  4. VITAMIN D3 [Suspect]
     Active Substance: CHOLECALCIFEROL
  5. ASPIRIN [Suspect]
     Active Substance: ASPIRIN
  6. CALCIUM CITRATE [Suspect]
     Active Substance: CALCIUM CITRATE
  7. CICLOPIROX [Suspect]
     Active Substance: CICLOPIROX
  8. ALBUTEROL SULFATE [Suspect]
     Active Substance: ALBUTEROL SULFATE
  9. RESTASIS [Suspect]
     Active Substance: CYCLOSPORINE
  10. ACETAMINOPHEN [Suspect]
     Active Substance: ACETAMINOPHEN
  11. OXYCODONE [Suspect]
     Active Substance: OXYCODONE
  12. ETHAMBUTOL [Suspect]
     Active Substance: ETHAMBUTOL HYDROCHLORIDE
  13. PRAVASTATIN [Suspect]
     Active Substance: PRAVASTATIN

REACTIONS (1)
  - Drug resistance [Unknown]
